FAERS Safety Report 26185360 (Version 2)
Quarter: 2025Q4

REPORT INFORMATION
  Report Type: Spontaneous
  Country: EU (occurrence: EU)
  Receive Date: 20251222
  Receipt Date: 20251223
  Transmission Date: 20260117
  Serious: Yes (Life-Threatening, Hospitalization)
  Sender: BOEHRINGER INGELHEIM
  Company Number: None

PATIENT
  Age: 66 Year
  Sex: Male
  Weight: 120 kg

DRUGS (4)
  1. OFEV [Suspect]
     Active Substance: NINTEDANIB
     Indication: Interstitial lung disease
     Dosage: 150 MG 1 CP (AS REPORTED) IN THE MORNING AND 1 CP (AS REPORTED) IN THE EVENING
     Dates: start: 20251022, end: 20251206
  2. METHOTREXATE (METHOTREXATE SODIUM) [Suspect]
     Active Substance: METHOTREXATE SODIUM
     Indication: Product used for unknown indication
     Dosage: 20 MG 1 SUBCUTANEOUS VIAL ONCE PER WEEK
  3. FOLINA [Concomitant]
     Indication: Product used for unknown indication
     Dosage: 5 MG 1 CP (AS REPORTED) THE DAY AFTER ADMINISTRATION OF METHOTREXATE
  4. CHOLECALCIFEROL [Concomitant]
     Active Substance: CHOLECALCIFEROL
     Indication: Product used for unknown indication
     Dosage: 50.000 IU ONCE PER MONTH

REACTIONS (1)
  - Diarrhoea [Recovered/Resolved]

NARRATIVE: CASE EVENT DATE: 20251007
